FAERS Safety Report 25548679 (Version 1)
Quarter: 2025Q3

REPORT INFORMATION
  Report Type: Spontaneous
  Country: EU (occurrence: EU)
  Receive Date: 20250714
  Receipt Date: 20250714
  Transmission Date: 20251020
  Serious: Yes (Congenital Anomaly)
  Sender: TAKEDA
  Company Number: EU-TAKEDA-2025TUS062493

PATIENT

DRUGS (1)
  1. ENTYVIO [Suspect]
     Active Substance: VEDOLIZUMAB
     Indication: Crohn^s disease
     Route: 064

REACTIONS (2)
  - Foetal macrosomia [Unknown]
  - Foetal exposure during pregnancy [Unknown]
